FAERS Safety Report 8965001 (Version 1)
Quarter: 2012Q4

REPORT INFORMATION
  Report Type: 
  Country: JP (occurrence: JP)
  Receive Date: 20121214
  Receipt Date: 20121214
  Transmission Date: 20130627
  Serious: Yes (Hospitalization)
  Sender: FDA-Public Use
  Company Number: JP-ROCHE-1166798

PATIENT

DRUGS (2)
  1. RIVOTRIL [Suspect]
     Indication: PRODUCT USED FOR UNKNOWN INDICATION
     Dosage: Dosage is uncertain.
     Route: 048
  2. RIVOTRIL [Suspect]
     Dosage: Dosage is uncertain.
     Route: 048

REACTIONS (1)
  - Pneumonia aspiration [Recovering/Resolving]
